FAERS Safety Report 15006043 (Version 1)
Quarter: 2018Q2

REPORT INFORMATION
  Report Type: Spontaneous
  Country: US (occurrence: US)
  Receive Date: 20180521
  Receipt Date: 20180521
  Transmission Date: 20180711
  Serious: Yes (Hospitalization)
  Sender: FDA-Public Use
  Company Number: None

PATIENT
  Age: 80 Year
  Sex: Female
  Weight: 49.2 kg

DRUGS (22)
  1. ADVAIR HFA [Concomitant]
     Active Substance: FLUTICASONE PROPIONATE\SALMETEROL XINAFOATE
  2. LEVEMIR [Concomitant]
     Active Substance: INSULIN DETEMIR
  3. MELATONIN [Concomitant]
     Active Substance: MELATONIN
  4. VITD3 [Concomitant]
  5. VITB12 [Concomitant]
  6. VITB12 [Concomitant]
  7. STOOL SOFTNER [Concomitant]
  8. HUMAL [Concomitant]
  9. COZAAR [Concomitant]
     Active Substance: LOSARTAN POTASSIUM
  10. CO [Concomitant]
  11. PRILOSEC [Concomitant]
     Active Substance: OMEPRAZOLE MAGNESIUM
  12. APA [Concomitant]
  13. ALBUTEROL. [Concomitant]
     Active Substance: ALBUTEROL
  14. CYMBALTA [Suspect]
     Active Substance: DULOXETINE HYDROCHLORIDE
  15. ASA [Concomitant]
     Active Substance: ASPIRIN
  16. LOPRESSOR [Concomitant]
     Active Substance: METOPROLOL TARTRATE
  17. LIPITOR [Concomitant]
     Active Substance: ATORVASTATIN CALCIUM
  18. PERCOCET [Suspect]
     Active Substance: ACETAMINOPHEN\OXYCODONE HYDROCHLORIDE
     Indication: PAIN
     Dosage: 10/325 MG X 2?OTHER FREQUENCY:Q6HRS; PRN, PO?
     Route: 048
  19. NIACIN. [Concomitant]
     Active Substance: NIACIN
  20. XANAX [Suspect]
     Active Substance: ALPRAZOLAM
     Indication: ANXIETY
     Dosage: 0.5 MG BID PRN ANXIETY PO
     Route: 048
  21. AMLODIPINE [Concomitant]
     Active Substance: AMLODIPINE BESYLATE
  22. ENZYME Q10 [Concomitant]

REACTIONS (5)
  - Encephalopathy [None]
  - Accidental overdose [None]
  - Therapy change [None]
  - Mental status changes [None]
  - Neuralgia [None]

NARRATIVE: CASE EVENT DATE: 20180109
